FAERS Safety Report 6348508-6 (Version None)
Quarter: 2009Q3

REPORT INFORMATION
  Report Type: 
  Country: None (occurrence: None)
  Receive Date: 20090911
  Receipt Date: 20090902
  Transmission Date: 20100115
  Serious: Yes (Hospitalization)
  Sender: FDA-Public Use
  Company Number: FR-ALLERGAN-0912578US

PATIENT
  Age: 83 Year
  Sex: Female

DRUGS (10)
  1. TROSPIUM CHLORIDE [Suspect]
     Indication: DRUG USE FOR UNKNOWN INDICATION
     Dosage: 20 MG, BID
     Route: 048
     Dates: end: 20090731
  2. DETENSIEL [Concomitant]
  3. LEVOTHYROXINE SODIUM [Concomitant]
  4. ALDACTONE [Concomitant]
  5. EUPRESSYL [Concomitant]
  6. GLUCOPHAGE [Concomitant]
  7. NOVONORM [Concomitant]
  8. KARDEGIC [Concomitant]
  9. EQUANIL [Concomitant]
  10. UVEDOSE [Concomitant]

REACTIONS (5)
  - COGNITIVE DISORDER [None]
  - CONFUSIONAL STATE [None]
  - CREATININE RENAL CLEARANCE DECREASED [None]
  - HYPOTENSION [None]
  - TACHYARRHYTHMIA [None]
